FAERS Safety Report 23627666 (Version 1)
Quarter: 2024Q1

REPORT INFORMATION
  Report Type: Spontaneous
  Country: GB (occurrence: GB)
  Receive Date: 20240313
  Receipt Date: 20240313
  Transmission Date: 20240409
  Serious: Yes (Disabling)
  Sender: FDA-Public Use
  Company Number: None

PATIENT
  Age: 68 Year
  Sex: Male
  Weight: 89 kg

DRUGS (6)
  1. ATORVASTATIN [Suspect]
     Active Substance: ATORVASTATIN
     Indication: Blood cholesterol increased
     Route: 065
     Dates: start: 20221102
  2. MACROGOL COMPOUND [Concomitant]
     Dosage: TIME INTERVAL: AS NECESSARY: TAKE 2 SACHETS DAILY AS REQUIRED
     Dates: start: 20210729
  3. ACETAMINOPHEN [Concomitant]
     Active Substance: ACETAMINOPHEN
     Dosage: TIME INTERVAL: AS NECESSARY: TAKE 1 TO 2 TABLETS UP TO FOUR TIMES A DAY WHEN...
     Dates: start: 20180817
  4. CODEINE PHOSPHATE [Concomitant]
     Active Substance: CODEINE PHOSPHATE
     Dosage: TAKE 1 TO 2 TABLETS 4-6 HOURLY WHEN REQUIRED FO..., DURATION: 4 DAYS
     Dates: start: 20240102, end: 20240106
  5. ALBUTEROL [Concomitant]
     Active Substance: ALBUTEROL
     Dosage: TIME INTERVAL: AS NECESSARY: INHALE ONE OR TWO PUFFS AS NEEDED TO RELIEVE BR...
     Dates: start: 20230208
  6. PEPPERMINT OIL [Concomitant]
     Active Substance: PEPPERMINT OIL
     Dosage: TIME INTERVAL: 0.33333333 DAYS: TO HELP BOWEL ...
     Dates: start: 20180817

REACTIONS (2)
  - Pain [Unknown]
  - Myalgia [Recovered/Resolved]
